FAERS Safety Report 7053630-5 (Version None)
Quarter: 2010Q4

REPORT INFORMATION
  Report Type: 
  Country: None (occurrence: None)
  Receive Date: 20101020
  Receipt Date: 20101015
  Transmission Date: 20110411
  Serious: Yes (Other)
  Sender: FDA-Public Use
  Company Number: BR-ROCHE-734476

PATIENT
  Sex: Male
  Weight: 59 kg

DRUGS (32)
  1. TAMIFLU [Suspect]
     Indication: VIRAL INFECTION
     Dosage: DOSE: 75MG/CAPSULE
     Route: 065
  2. PULMOZYME [Suspect]
     Indication: INCREASED BRONCHIAL SECRETION
     Dosage: DOSE: 2.5MG/2.5ML, FREQUENCY: 1 AMPOULE EVERY DAY
     Route: 055
     Dates: start: 20000101
  3. KANAKION [Suspect]
     Indication: VITAMIN K DEFICIENCY
     Dosage: PATIENT INTRAVENOUSLY ADMINISTERED 5 AMPOULES OF VITAMIN K
     Route: 030
     Dates: start: 20101014, end: 20101014
  4. KANAKION [Suspect]
     Route: 030
     Dates: start: 20020101
  5. KANAKION [Suspect]
     Dosage: INCREASED DOSAGE, DOSE: 10 MG/ML
     Route: 030
  6. NUTRISON [Concomitant]
  7. OMEGA-3-ACID ETHYL ESTERS [Concomitant]
     Indication: INFLAMMATION
     Dosage: DRUG: OMEGA 3
  8. CREON [Concomitant]
     Dosage: INDICATION: ENZYME TO ABSORB VITAMINS
     Dates: start: 19900101
  9. CURCUMIN [Concomitant]
     Dosage: DRUG: LIPOFILIC CURCUMIN
  10. ASCORBIC ACID [Concomitant]
  11. VITAMIN A [Concomitant]
  12. VITAMIN B3 [Concomitant]
  13. VITAMIN B1 TAB [Concomitant]
  14. VITAMIN B6 [Concomitant]
  15. FOLIC ACID [Concomitant]
  16. CHELATED MAGNESIUM [Concomitant]
  17. CHELATED MAGNESIUM [Concomitant]
  18. SELENIUM [Concomitant]
     Dosage: DRUG: CHELATED SELENIUM
  19. IODINE [Concomitant]
     Dosage: DRUG: CHELATED IODINE
  20. ALPHA-LIPOIC ACID [Concomitant]
  21. CALCIUM [Concomitant]
     Dosage: DRUG: CHELATED CALCIUM
  22. PHOSPHATIDYLSERINE [Concomitant]
  23. VITAMIN E [Concomitant]
  24. VITAMIN K TAB [Concomitant]
  25. VITAMIN B-12 [Concomitant]
  26. VITAMIN B5 [Concomitant]
  27. VITAMIN B-12 [Concomitant]
  28. ZINC [Concomitant]
  29. L-CARNITINE [Concomitant]
  30. ACETYLCYSTEINE [Concomitant]
  31. EQUISETUM [Concomitant]
     Dosage: DRUG: EQUICETUM
  32. CIPROMAX [Concomitant]
     Indication: CYSTIC FIBROSIS
     Dosage: DRUG: ZIPROMAX

REACTIONS (7)
  - COUGH [None]
  - DRUG ADMINISTRATION ERROR [None]
  - NASAL CONGESTION [None]
  - PSEUDOMONAS INFECTION [None]
  - RESPIRATORY DISORDER [None]
  - VIRAL INFECTION [None]
  - WEIGHT DECREASED [None]
